FAERS Safety Report 11061316 (Version 1)
Quarter: 2015Q2

REPORT INFORMATION
  Report Type: Spontaneous
  Country: US (occurrence: None)
  Receive Date: 20150423
  Receipt Date: 20150423
  Transmission Date: 20150821
  Serious: Yes (Hospitalization)
  Sender: FDA-Public Use
  Company Number: None

PATIENT
  Age: 60 Year
  Sex: Female

DRUGS (15)
  1. ENBREL [Suspect]
     Active Substance: ETANERCEPT
     Indication: RHEUMATOID ARTHRITIS
     Dosage: 50MG, ONCE WEEKLY, SUBCUTANEOUS
     Route: 058
     Dates: start: 20140718, end: 20150422
  2. TEMAZEPAM. [Concomitant]
     Active Substance: TEMAZEPAM
  3. METHOTREXATE [Concomitant]
     Active Substance: METHOTREXATE
  4. VERAPAMIL [Concomitant]
     Active Substance: VERAPAMIL HYDROCHLORIDE
  5. VESICARE [Concomitant]
     Active Substance: SOLIFENACIN SUCCINATE
  6. ADVAIR HFA [Concomitant]
     Active Substance: FLUTICASONE PROPIONATE\SALMETEROL XINAFOATE
  7. CLONAZEPAM. [Concomitant]
     Active Substance: CLONAZEPAM
  8. PANTOPROZOLE [Concomitant]
  9. METHYLPHENIDATE [Concomitant]
     Active Substance: METHYLPHENIDATE
  10. METFORMIN [Concomitant]
     Active Substance: METFORMIN HYDROCHLORIDE
  11. LISINOPRIL. [Concomitant]
     Active Substance: LISINOPRIL
  12. DULOXETINE [Concomitant]
     Active Substance: DULOXETINE
  13. OPANA [Concomitant]
     Active Substance: OXYMORPHONE HYDROCHLORIDE
  14. LYRICA [Concomitant]
     Active Substance: PREGABALIN
  15. FLUTICASONE [Concomitant]
     Active Substance: FLUTICASONE\FLUTICASONE PROPIONATE

REACTIONS (2)
  - Pneumonia [None]
  - Sinusitis [None]

NARRATIVE: CASE EVENT DATE: 20150412
